FAERS Safety Report 18228858 (Version 1)
Quarter: 2020Q3

REPORT INFORMATION
  Report Type: Spontaneous
  Country: US (occurrence: US)
  Receive Date: 20200903
  Receipt Date: 20200903
  Transmission Date: 20201103
  Serious: No
  Sender: FDA-Public Use
  Company Number: US-JNJFOC-20200848046

PATIENT
  Age: 56 Year
  Sex: Female

DRUGS (5)
  1. DARZALEX [Suspect]
     Active Substance: DARATUMUMAB
     Indication: PRODUCT USED FOR UNKNOWN INDICATION
     Route: 065
  2. DEXAMETHASONE. [Concomitant]
     Active Substance: DEXAMETHASONE
     Route: 065
     Dates: start: 2013, end: 2015
  3. DARATUMUMAB [Concomitant]
     Active Substance: DARATUMUMAB
     Route: 065
  4. DEXAMETHASONE. [Concomitant]
     Active Substance: DEXAMETHASONE
     Route: 065
     Dates: start: 201004, end: 201008
  5. POMALYST [Suspect]
     Active Substance: POMALIDOMIDE
     Indication: PLASMA CELL MYELOMA
     Dates: start: 201805

REACTIONS (7)
  - Fatigue [Unknown]
  - Product dose omission issue [Unknown]
  - Cognitive disorder [Unknown]
  - Back pain [Unknown]
  - Unevaluable event [Unknown]
  - White blood cell count decreased [Unknown]
  - Gastrointestinal disorder [Unknown]
